FAERS Safety Report 11051119 (Version 1)
Quarter: 2015Q2

REPORT INFORMATION
  Report Type: Spontaneous
  Country: JP (occurrence: JP)
  Receive Date: 20150421
  Receipt Date: 20150421
  Transmission Date: 20150821
  Serious: Yes (Hospitalization)
  Sender: FDA-Public Use
  Company Number: JP-SA-2015SA049019

PATIENT
  Age: 74 Year
  Sex: Female

DRUGS (4)
  1. FEXOFENADINE HYDROCHLORIDE. [Suspect]
     Active Substance: FEXOFENADINE HYDROCHLORIDE
     Indication: PEMPHIGOID
     Route: 065
     Dates: start: 201212
  2. FAMOTIDINE. [Suspect]
     Active Substance: FAMOTIDINE
     Indication: PEMPHIGOID
     Route: 065
     Dates: start: 201212
  3. PREDNISOLONE. [Concomitant]
     Active Substance: PREDNISOLONE
     Route: 065
  4. MINOCYCLINE HYDROCHLORIDE. [Suspect]
     Active Substance: MINOCYCLINE HYDROCHLORIDE
     Indication: PEMPHIGOID
     Route: 065
     Dates: start: 201212

REACTIONS (4)
  - Agranulocytosis [Recovering/Resolving]
  - White blood cell count decreased [Unknown]
  - Neutrophil count decreased [Recovered/Resolved]
  - Pyrexia [Unknown]

NARRATIVE: CASE EVENT DATE: 20130106
